FAERS Safety Report 5645679-1 (Version None)
Quarter: 2008Q1

REPORT INFORMATION
  Report Type: 
  Country: None (occurrence: None)
  Receive Date: 20080229
  Receipt Date: 20080204
  Transmission Date: 20080703
  Serious: No
  Sender: FDA-Public Use
  Company Number: US-BOEHRINGER INGELHEIM GMBH, GERMANY-2008-BP-00157BP

PATIENT
  Sex: Male

DRUGS (7)
  1. CATAPRES-TTS-1 [Suspect]
     Indication: HYPERTENSION
     Route: 061
     Dates: start: 20071221
  2. TIKOSYN [Concomitant]
  3. METOPROLOL TARTRATE [Concomitant]
  4. LISINOPRIL [Concomitant]
  5. DILTIAZER [Concomitant]
  6. FORADIL [Concomitant]
  7. ASMADEX [Concomitant]

REACTIONS (1)
  - BLOOD PRESSURE INCREASED [None]
